FAERS Safety Report 10062629 (Version 1)
Quarter: 2014Q2

REPORT INFORMATION
  Report Type: Spontaneous
  Country: ES (occurrence: ES)
  Receive Date: 20140407
  Receipt Date: 20140407
  Transmission Date: 20141212
  Serious: Yes (Hospitalization)
  Sender: FDA-Public Use
  Company Number: ES-GLAXOSMITHKLINE-B0983101A

PATIENT
  Age: 48 Year
  Sex: Female

DRUGS (1)
  1. ARZERRA [Suspect]
     Indication: B-CELL LYMPHOMA
     Dosage: 300MG PER DAY
     Route: 042
     Dates: start: 20131213, end: 20131213

REACTIONS (4)
  - Chills [Recovered/Resolved]
  - Flushing [Recovered/Resolved]
  - Pruritus [Recovered/Resolved]
  - Urticaria [Recovered/Resolved]
